FAERS Safety Report 7939297-X (Version None)
Quarter: 2011Q4

REPORT INFORMATION
  Report Type: 
  Country: None (occurrence: None)
  Receive Date: 20111125
  Receipt Date: 20111118
  Transmission Date: 20120403
  Serious: Yes (Other)
  Sender: FDA-Public Use
  Company Number: US-RB-030285-11

PATIENT
  Age: 6 Year
  Sex: Female

DRUGS (2)
  1. DELSYM COUGH SYRUP GRAPE [Suspect]
     Indication: COUGH
     Route: 048
  2. CLARITIN [Suspect]
     Indication: PRODUCT USED FOR UNKNOWN INDICATION
     Dosage: TOOK ONE TABLET ON 17-NOV-2011
     Route: 048

REACTIONS (2)
  - HALLUCINATION [None]
  - INSOMNIA [None]
